FAERS Safety Report 10433917 (Version 2)
Quarter: 2014Q3

REPORT INFORMATION
  Report Type: Spontaneous
  Country: TR (occurrence: TR)
  Receive Date: 20140905
  Receipt Date: 20140905
  Transmission Date: 20150326
  Serious: Yes (Death, Other)
  Sender: FDA-Public Use
  Company Number: TR-JNJFOC-20140610930

PATIENT
  Age: 29 Year
  Sex: Female

DRUGS (7)
  1. PAROL [Concomitant]
     Active Substance: ACETAMINOPHEN
     Indication: UNEVALUABLE EVENT
  2. DEKORT [Concomitant]
     Active Substance: DEXAMETHASONE
     Indication: UNEVALUABLE EVENT
     Route: 042
  3. IBRUTINIB [Suspect]
     Active Substance: IBRUTINIB
     Indication: NON-HODGKIN^S LYMPHOMA
     Route: 048
     Dates: start: 20140529, end: 20140602
  4. CONTRAMAL [Concomitant]
     Active Substance: TRAMADOL HYDROCHLORIDE
     Indication: UNEVALUABLE EVENT
  5. LANSOPRAZOLE. [Concomitant]
     Active Substance: LANSOPRAZOLE
     Indication: UNEVALUABLE EVENT
  6. IBRUTINIB [Suspect]
     Active Substance: IBRUTINIB
     Indication: LYMPHOCYTIC LEUKAEMIA
     Route: 048
     Dates: start: 20140529, end: 20140602
  7. METOCLOPRAMIDE HYDROCHLORIDE. [Concomitant]
     Active Substance: METOCLOPRAMIDE HYDROCHLORIDE
     Indication: UNEVALUABLE EVENT

REACTIONS (3)
  - Death [Fatal]
  - Off label use [Unknown]
  - Thrombocytopenia [Unknown]

NARRATIVE: CASE EVENT DATE: 2014
